FAERS Safety Report 12885632 (Version 1)
Quarter: 2016Q4

REPORT INFORMATION
  Report Type: Report from Study
  Country: IT (occurrence: IT)
  Receive Date: 20161026
  Receipt Date: 20161026
  Transmission Date: 20170207
  Serious: Yes (Other)
  Sender: FDA-Public Use
  Company Number: IT-MYLANLABS-2016M1045261

PATIENT

DRUGS (2)
  1. PARACETAMOL CODEINE [Suspect]
     Active Substance: ACETAMINOPHEN\CODEINE PHOSPHATE
     Indication: PRODUCT USED FOR UNKNOWN INDICATION
     Dosage: 9 DF, TOTAL
     Route: 048
     Dates: start: 20160919, end: 20160919
  2. OLANZAPINE. [Suspect]
     Active Substance: OLANZAPINE
     Indication: PRODUCT USED FOR UNKNOWN INDICATION
     Dosage: 7 DF, TOTAL
     Route: 048
     Dates: start: 20160919, end: 20160919

REACTIONS (4)
  - Intentional overdose [Unknown]
  - Toxicity to various agents [Recovering/Resolving]
  - Sopor [Recovering/Resolving]
  - Drug abuse [Recovering/Resolving]

NARRATIVE: CASE EVENT DATE: 20160919
